FAERS Safety Report 5827149-0 (Version None)
Quarter: 2008Q3

REPORT INFORMATION
  Report Type: 
  Country: None (occurrence: None)
  Receive Date: 20080724
  Receipt Date: 20080715
  Transmission Date: 20090109
  Serious: Yes (Other)
  Sender: FDA-Public Use
  Company Number: CHNY2007IE03956

PATIENT
  Age: 65 Year
  Sex: Female

DRUGS (7)
  1. SCOPOLAMINE [Suspect]
     Indication: INCREASED BRONCHIAL SECRETION
     Dosage: 1 PATCH, TRANSDERMAL, 1/2 PATCH, TRANSDERMAL, 0.25 DF, Q72H, TRANSDERMAL
     Route: 062
     Dates: start: 20071128
  2. CORDISOL [Concomitant]
  3. XANAX [Concomitant]
  4. LUSTRAL (SERTRALINE HYDROCHLORIDE) TABLET [Concomitant]
  5. LIORESAL [Concomitant]
  6. CALOGEN /IRE/ (ARACHIS HYPOGAEA OIL) [Concomitant]
  7. JEVITY (CORN OIL, ELECTROLYTES NOS, FATTY ACIDS NOS, GLYCINE MAX SEED [Concomitant]

REACTIONS (16)
  - CONFUSIONAL STATE [None]
  - COUGH [None]
  - DISORIENTATION [None]
  - DRUG HYPERSENSITIVITY [None]
  - DRY EYE [None]
  - DRY MOUTH [None]
  - ERYTHEMA [None]
  - EYE DISORDER [None]
  - EYE SWELLING [None]
  - FLUSHING [None]
  - OCULAR HYPERAEMIA [None]
  - RASH [None]
  - RASH MACULAR [None]
  - SKIN SWELLING [None]
  - SOMNOLENCE [None]
  - WRONG TECHNIQUE IN DRUG USAGE PROCESS [None]
